FAERS Safety Report 7563734-6 (Version None)
Quarter: 2011Q2

REPORT INFORMATION
  Report Type: 
  Country: None (occurrence: None)
  Receive Date: 20110622
  Receipt Date: 20110614
  Transmission Date: 20111010
  Serious: Yes (Other)
  Sender: FDA-Public Use
  Company Number: US-MERCK-1105USA03616

PATIENT
  Age: 7 Year
  Sex: Female
  Weight: 23 kg

DRUGS (4)
  1. SINGULAIR [Suspect]
     Indication: ASTHMA
     Route: 048
  2. PRELONE [Concomitant]
     Route: 048
  3. PROAIR (ALBUTEROL SULFATE) [Concomitant]
     Indication: ASTHMA
     Route: 055
  4. QVAR 40 [Concomitant]
     Route: 065

REACTIONS (1)
  - IDIOPATHIC THROMBOCYTOPENIC PURPURA [None]
